FAERS Safety Report 19157264 (Version 3)
Quarter: 2021Q2

REPORT INFORMATION
  Report Type: Spontaneous
  Country: US (occurrence: US)
  Receive Date: 20210420
  Receipt Date: 20210603
  Transmission Date: 20210717
  Serious: No
  Sender: FDA-Public Use
  Company Number: US-BIOVITRUM-2021US3756

PATIENT
  Sex: Male
  Weight: 6 kg

DRUGS (1)
  1. SYNAGIS [Suspect]
     Active Substance: PALIVIZUMAB
     Indication: SPINAL MUSCULAR ATROPHY
     Dosage: SYNAGIS 50MG/0.5ML VL LIQUID, 100MG/1ML VL LIQUID
     Route: 030

REACTIONS (2)
  - Weight increased [Unknown]
  - Off label use [Unknown]
